FAERS Safety Report 19229681 (Version 1)
Quarter: 2021Q2

REPORT INFORMATION
  Report Type: Spontaneous
  Country: IN (occurrence: IN)
  Receive Date: 20210506
  Receipt Date: 20210506
  Transmission Date: 20210717
  Serious: Yes (Death, Hospitalization, Other)
  Sender: FDA-Public Use
  Company Number: IN-SA-2021SA144956

PATIENT
  Age: 46 Year
  Sex: Female

DRUGS (4)
  1. ISONIAZID. [Suspect]
     Active Substance: ISONIAZID
     Indication: TUBERCULOSIS
     Dosage: 300 MG
  2. PYRAZINAMIDE. [Suspect]
     Active Substance: PYRAZINAMIDE
     Indication: TUBERCULOSIS
     Dosage: 750 MG
  3. RIFAMPICIN [Suspect]
     Active Substance: RIFAMPIN
     Indication: TUBERCULOSIS
     Dosage: 450 MG
  4. ETHAMBUTOL [Suspect]
     Active Substance: ETHAMBUTOL HYDROCHLORIDE
     Indication: TUBERCULOSIS
     Dosage: 800 MG

REACTIONS (11)
  - Chills [Fatal]
  - Productive cough [Fatal]
  - Oedema peripheral [Fatal]
  - Jaundice [Fatal]
  - Toxic epidermal necrolysis [Fatal]
  - Renal failure [Fatal]
  - Skin erosion [Fatal]
  - Rash [Fatal]
  - Hepatic steatosis [Fatal]
  - Stevens-Johnson syndrome [Fatal]
  - Pyrexia [Fatal]
